FAERS Safety Report 15717216 (Version 1)
Quarter: 2018Q4

REPORT INFORMATION
  Report Type: Report from Study
  Country: NP (occurrence: NP)
  Receive Date: 20181213
  Receipt Date: 20181213
  Transmission Date: 20190205
  Serious: Yes (Other)
  Sender: FDA-Public Use
  Company Number: PHHY2017NP163601

PATIENT
  Age: 59 Year
  Sex: Male

DRUGS (1)
  1. GLIVEC [Suspect]
     Active Substance: IMATINIB MESYLATE
     Indication: CHRONIC MYELOID LEUKAEMIA
     Dosage: 400 MG, UNK
     Route: 065

REACTIONS (2)
  - Swelling face [Unknown]
  - Tuberculosis [Unknown]

NARRATIVE: CASE EVENT DATE: 201807
